FAERS Safety Report 5761843-5 (Version None)
Quarter: 2008Q2

REPORT INFORMATION
  Report Type: 
  Country: None (occurrence: None)
  Receive Date: 20080603
  Receipt Date: 20080519
  Transmission Date: 20081010
  Serious: Yes (Life-Threatening, Hospitalization, Other)
  Sender: FDA-Public Use
  Company Number: 163-21880-08050077

PATIENT
  Age: 61 Year
  Sex: Female
  Weight: 59.2 kg

DRUGS (7)
  1. REVLIMID [Suspect]
     Indication: MULTIPLE MYELOMA
     Dosage: 10 MG, QD FOR 3 MONTHS, ORAL; 10 MG, QD FOR 3 MONTHS, ORAL
     Route: 048
     Dates: start: 20080219, end: 20080326
  2. REVLIMID [Suspect]
     Indication: MULTIPLE MYELOMA
     Dosage: 10 MG, QD FOR 3 MONTHS, ORAL; 10 MG, QD FOR 3 MONTHS, ORAL
     Route: 048
     Dates: start: 20070607
  3. ACYCLOVIR [Concomitant]
  4. ASPIRIN [Concomitant]
  5. LIPITOR [Concomitant]
  6. LORAZEPAM [Concomitant]
  7. MULTIVITAMIN [Concomitant]

REACTIONS (13)
  - CEREBROVASCULAR ACCIDENT [None]
  - COGNITIVE DISORDER [None]
  - ENCEPHALITIS [None]
  - HALLUCINATION, VISUAL [None]
  - HEMIANOPIA [None]
  - INFLUENZA LIKE ILLNESS [None]
  - LACTIC ACIDOSIS [None]
  - LYMPHOPENIA [None]
  - MITOCHONDRIAL NEUROGASTROINTESTINAL ENCEPHALOPATHY [None]
  - NECK PAIN [None]
  - NUCLEAR MAGNETIC RESONANCE IMAGING BRAIN ABNORMAL [None]
  - PHOTOPHOBIA [None]
  - PHOTOPSIA [None]
